FAERS Safety Report 6327300-2 (Version None)
Quarter: 2009Q3

REPORT INFORMATION
  Report Type: 
  Country: None (occurrence: None)
  Receive Date: 20090825
  Receipt Date: 20090821
  Transmission Date: 20100115
  Serious: Yes (Life-Threatening, Disabling, Other)
  Sender: FDA-Public Use
  Company Number: US-MERCK-0907USA01334

PATIENT
  Age: 15 Year
  Sex: Female
  Weight: 60 kg

DRUGS (7)
  1. MAXALT [Suspect]
     Indication: MIGRAINE
     Route: 048
     Dates: start: 20090604
  2. LEXAPRO [Concomitant]
     Route: 048
     Dates: start: 20080801
  3. LAMICTAL [Concomitant]
     Route: 048
     Dates: start: 20080801
  4. PREVACID [Concomitant]
     Route: 065
  5. DESYREL [Concomitant]
     Route: 065
  6. PERIACTIN [Concomitant]
     Route: 065
  7. COMPAZINE [Suspect]
     Route: 065
     Dates: start: 20090604

REACTIONS (9)
  - DYSPHAGIA [None]
  - DYSPNOEA [None]
  - HEAD DISCOMFORT [None]
  - HYPOXIA [None]
  - MUSCLE TIGHTNESS [None]
  - MUSCULOSKELETAL DISCOMFORT [None]
  - PANIC ATTACK [None]
  - SPEECH DISORDER [None]
  - TENSION HEADACHE [None]
